FAERS Safety Report 20142016 (Version 4)
Quarter: 2022Q1

REPORT INFORMATION
  Report Type: Spontaneous
  Country: US (occurrence: US)
  Receive Date: 20211202
  Receipt Date: 20220111
  Transmission Date: 20220423
  Serious: Yes (Other)
  Sender: FDA-Public Use
  Company Number: US-ORGANON-O2111USA002225

PATIENT
  Age: 26 Year
  Sex: Female
  Weight: 107.03 kg

DRUGS (2)
  1. NEXPLANON [Suspect]
     Active Substance: ETONOGESTREL
     Indication: Contraception
     Dosage: 1 IMPLANT
     Route: 059
     Dates: end: 20211101
  2. NEXPLANON [Suspect]
     Active Substance: ETONOGESTREL
     Dosage: 1 IMPLANT (ALSO REPORTED AS 68 MG), EVERY 3 YEARS, LEFT ARM
     Route: 059
     Dates: start: 20211101, end: 20211216

REACTIONS (7)
  - Implant site cellulitis [Unknown]
  - Implant site abscess [Unknown]
  - Implant site discharge [Recovering/Resolving]
  - Implant site infection [Unknown]
  - Complication of device removal [Recovered/Resolved]
  - Pain [Unknown]
  - Incorrect product administration duration [Unknown]

NARRATIVE: CASE EVENT DATE: 20211116
